FAERS Safety Report 8301731-3 (Version None)
Quarter: 2012Q2

REPORT INFORMATION
  Report Type: 
  Country: None (occurrence: None)
  Receive Date: 20120420
  Receipt Date: 20120411
  Transmission Date: 20120825
  Serious: Yes (Hospitalization)
  Sender: FDA-Public Use
  Company Number: US-ACTELION-A-NJ2012-64129

PATIENT

DRUGS (3)
  1. EFFIENT [Concomitant]
  2. TRACLEER [Suspect]
     Indication: PULMONARY ARTERIAL HYPERTENSION
     Dosage: UNK
     Route: 048
  3. PLAVIX [Concomitant]

REACTIONS (5)
  - NAUSEA [None]
  - CONSTIPATION [None]
  - MALAISE [None]
  - STENT PLACEMENT [None]
  - VOMITING [None]
